FAERS Safety Report 13704900 (Version 1)
Quarter: 2017Q2

REPORT INFORMATION
  Report Type: Spontaneous
  Country: US (occurrence: US)
  Receive Date: 20170630
  Receipt Date: 20170630
  Transmission Date: 20170830
  Serious: Yes (Hospitalization)
  Sender: FDA-Public Use
  Company Number: US-LUPIN PHARMACEUTICALS INC.-2017-03470

PATIENT
  Sex: Female

DRUGS (1)
  1. MIBELAS 24 FE [Suspect]
     Active Substance: ETHINYL ESTRADIOL\NORETHINDRONE ACETATE
     Indication: CONTRACEPTION
     Dosage: UNK
     Route: 065

REACTIONS (7)
  - Anxiety [Unknown]
  - Skin burning sensation [Unknown]
  - Acne cystic [Unknown]
  - Pruritus [Unknown]
  - Hair growth abnormal [Unknown]
  - Pigmentation disorder [Unknown]
  - Depression [Unknown]
